FAERS Safety Report 11059295 (Version 1)
Quarter: 2015Q2

REPORT INFORMATION
  Report Type: Spontaneous
  Country: US (occurrence: None)
  Receive Date: 20150422
  Receipt Date: 20150422
  Transmission Date: 20150821
  Serious: Yes (Hospitalization, Other)
  Sender: FDA-Public Use
  Company Number: None

PATIENT
  Age: 66 Year
  Sex: Male
  Weight: 100 kg

DRUGS (9)
  1. OXYCODONE ER [Concomitant]
  2. OXYCODONE [Concomitant]
     Active Substance: OXYCODONE
  3. WARFARIN [Concomitant]
     Active Substance: WARFARIN
  4. PREDNISONE. [Concomitant]
     Active Substance: PREDNISONE
  5. ENZALUTAMIDE 40MG [Suspect]
     Active Substance: ENZALUTAMIDE
     Indication: METASTASES TO BONE
     Route: 048
     Dates: start: 20150225, end: 20150312
  6. ENZALUTAMIDE [Concomitant]
     Active Substance: ENZALUTAMIDE
  7. ENZALUTAMIDE 40MG [Suspect]
     Active Substance: ENZALUTAMIDE
     Indication: PROSTATE CANCER METASTATIC
     Route: 048
     Dates: start: 20150225, end: 20150312
  8. CALCIUM CITRATE [Concomitant]
     Active Substance: CALCIUM CITRATE
  9. VITAMIN D [Concomitant]
     Active Substance: CHOLECALCIFEROL

REACTIONS (4)
  - International normalised ratio increased [None]
  - Haemoglobin decreased [None]
  - Drug interaction [None]
  - Haematuria [None]

NARRATIVE: CASE EVENT DATE: 20150312
